FAERS Safety Report 13172104 (Version 1)
Quarter: 2017Q1

REPORT INFORMATION
  Report Type: Spontaneous
  Country: US (occurrence: US)
  Receive Date: 20170131
  Receipt Date: 20170131
  Transmission Date: 20170428
  Serious: No
  Sender: FDA-Public Use
  Company Number: US-SAGENTPRD-2016-US-000138

PATIENT
  Sex: 0

DRUGS (4)
  1. IRINOTECAN [Concomitant]
     Active Substance: IRINOTECAN
  2. BEVACIZUMAB [Concomitant]
     Active Substance: BEVACIZUMAB
  3. FLUOROURACIL. [Concomitant]
     Active Substance: FLUOROURACIL
  4. LEUCOVORIN CALCIUM FOR INJECTION [Suspect]
     Active Substance: LEUCOVORIN CALCIUM
     Dosage: 400 MG/M2

REACTIONS (1)
  - Proteinuria [Unknown]
